FAERS Safety Report 6303326-X (Version None)
Quarter: 2009Q3

REPORT INFORMATION
  Report Type: 
  Country: None (occurrence: None)
  Receive Date: 20090810
  Receipt Date: 20090603
  Transmission Date: 20100115
  Serious: No
  Sender: FDA-Public Use
  Company Number: A0788586A

PATIENT
  Age: 54 Year
  Sex: Female

DRUGS (5)
  1. TREXIMET [Suspect]
     Indication: MIGRAINE
     Dosage: 1TAB SINGLE DOSE
     Route: 048
     Dates: start: 20090501
  2. SINGULAIR [Concomitant]
  3. CELEXA [Concomitant]
  4. ZANAFLEX [Concomitant]
  5. VOLTAREN GEL [Concomitant]

REACTIONS (1)
  - DRUG INEFFECTIVE [None]
